FAERS Safety Report 8813494 (Version 1)
Quarter: 2012Q4

REPORT INFORMATION
  Report Type: 
  Country: US (occurrence: US)
  Receive Date: 20120927
  Receipt Date: 20120927
  Transmission Date: 20130627
  Serious: No
  Sender: FDA-Public Use
  Company Number: US-AMGEN-USASP2012045146

PATIENT
  Age: 71 Year
  Sex: Female

DRUGS (14)
  1. PROLIA [Suspect]
     Indication: OSTEOPOROSIS POSTMENOPAUSAL
     Dosage: 60 mg, q6mo
     Dates: start: 20110104, end: 201207
  2. ASPIRIN [Concomitant]
     Dosage: 1 mg, qd
  3. CLARITIN [Concomitant]
     Dosage: 1 mg, qd
  4. CALCIUM [Concomitant]
     Dosage: 2 mg, qd
  5. ZYRTEC [Concomitant]
     Dosage: 1 mg, qd
  6. NAPROXEN [Concomitant]
     Dosage: 2 mg, qd
  7. PRILOSEC [Concomitant]
     Dosage: 1 mg, qd
  8. NIACIN [Concomitant]
     Dosage: 1 mg, qd
  9. LISINOPRIL [Concomitant]
     Dosage: 1 mg, qd
  10. COLACE [Concomitant]
     Dosage: 2 mg, qd
  11. VICODIN ES [Concomitant]
     Dosage: UNK UNK, qd
  12. ALBUTEROL [Concomitant]
     Dosage: UNK UNK, qd
  13. SYMBICORT [Concomitant]
  14. VERAMYST [Concomitant]

REACTIONS (4)
  - Pain [Not Recovered/Not Resolved]
  - Fatigue [Not Recovered/Not Resolved]
  - Blood cholesterol increased [Not Recovered/Not Resolved]
  - Back pain [Not Recovered/Not Resolved]
